FAERS Safety Report 4760284-7 (Version None)
Quarter: 2005Q3

REPORT INFORMATION
  Report Type: 
  Country: None (occurrence: None)
  Receive Date: 20050831
  Receipt Date: 20050816
  Transmission Date: 20060218
  Serious: Yes (Death, Other)
  Sender: FDA-Public Use
  Company Number: USA0507101946

PATIENT
  Age: 27 Year
  Sex: Female
  Weight: 113 kg

DRUGS (5)
  1. ZYPREXA [Suspect]
     Indication: BIPOLAR I DISORDER
     Dosage: 20 MG/1 DAY
     Dates: start: 20050215
  2. LITHIUM CARBONATE [Concomitant]
  3. PROZAC [Concomitant]
  4. TRAZODONE HCL [Concomitant]
  5. METFORMIN [Concomitant]

REACTIONS (4)
  - BEDRIDDEN [None]
  - DEPRESSION [None]
  - PULMONARY THROMBOSIS [None]
  - WEIGHT INCREASED [None]
